FAERS Safety Report 5948984-4 (Version None)
Quarter: 2008Q4

REPORT INFORMATION
  Report Type: 
  Country: None (occurrence: None)
  Receive Date: 20081111
  Receipt Date: 20081031
  Transmission Date: 20090506
  Serious: Yes (Hospitalization, Other)
  Sender: FDA-Public Use
  Company Number: US-ELI_LILLY_AND_COMPANY-US200810007704

PATIENT
  Sex: Male
  Weight: 144.22 kg

DRUGS (10)
  1. BYETTA [Suspect]
     Indication: TYPE 2 DIABETES MELLITUS
     Dosage: 5 UG, 2/D
     Route: 058
     Dates: start: 20080401, end: 20080601
  2. BYETTA [Suspect]
     Dosage: 10 UG, 2/D
     Route: 058
     Dates: start: 20080601, end: 20081030
  3. HUMALOG [Concomitant]
     Indication: TYPE 2 DIABETES MELLITUS
     Dosage: 86 U, EACH MORNING
     Dates: start: 20060101, end: 20081030
  4. HUMALOG [Concomitant]
     Dosage: 84 U, EACH EVENING
     Dates: start: 20060101, end: 20081030
  5. HUMALOG [Concomitant]
     Dosage: 75 U, 2/D
     Dates: start: 20081030
  6. ACTOS [Concomitant]
     Indication: TYPE 2 DIABETES MELLITUS
     Dosage: 30 MG, UNKNOWN
     Route: 048
  7. COLCHICINE [Concomitant]
     Indication: GOUT
     Dosage: 0.6 MG, DAILY (1/D)
     Route: 048
  8. TRICOR [Concomitant]
     Indication: BLOOD CHOLESTEROL INCREASED
     Dosage: 145 MG, DAILY (1/D)
     Route: 048
     Dates: start: 20060101
  9. LISINOPRIL [Concomitant]
     Indication: HYPERTENSION
     Dosage: 30 MG, DAILY (1/D)
     Route: 048
     Dates: end: 20081030
  10. LISINOPRIL [Concomitant]
     Dosage: 5 MG, DAILY (1/D)
     Route: 048
     Dates: start: 20081030

REACTIONS (5)
  - BLOOD GLUCOSE DECREASED [None]
  - CHEST PAIN [None]
  - DYSPNOEA [None]
  - MUSCLE SPASMS [None]
  - PULMONARY EMBOLISM [None]
